FAERS Safety Report 10482802 (Version 2)
Quarter: 2015Q3

REPORT INFORMATION
  Report Type: Spontaneous
  Country: US (occurrence: US)
  Receive Date: 20140929
  Receipt Date: 20150818
  Transmission Date: 20151125
  Serious: No
  Sender: FDA-Public Use
  Company Number: US-GILEAD-2014-0116283

PATIENT
  Age: 60 Year
  Sex: Female

DRUGS (5)
  1. LETAIRIS [Suspect]
     Active Substance: AMBRISENTAN
     Indication: PRODUCT USED FOR UNKNOWN INDICATION
     Dosage: 10 MG, QD
     Route: 065
     Dates: start: 20131022
  2. VELETRI [Suspect]
     Active Substance: EPOPROSTENOL
     Dosage: 25 DF, UNK
     Route: 065
     Dates: start: 20140918
  3. WARFARIN [Concomitant]
     Active Substance: WARFARIN
  4. ADCIRCA [Concomitant]
     Active Substance: TADALAFIL
  5. VELETRI [Suspect]
     Active Substance: EPOPROSTENOL
     Indication: PRODUCT USED FOR UNKNOWN INDICATION
     Dosage: 26 DF, UNK
     Route: 065
     Dates: start: 201409

REACTIONS (9)
  - Limb discomfort [Unknown]
  - Nausea [Unknown]
  - Paraesthesia [Unknown]
  - Diarrhoea [Unknown]
  - Pain [Unknown]
  - Asthenia [Unknown]
  - Headache [Recovering/Resolving]
  - Pain in jaw [Unknown]
  - Cough [Unknown]

NARRATIVE: CASE EVENT DATE: 20140919
